FAERS Safety Report 6193275-2 (Version None)
Quarter: 2009Q2

REPORT INFORMATION
  Report Type: 
  Country: None (occurrence: None)
  Receive Date: 20090518
  Receipt Date: 20090514
  Transmission Date: 20091009
  Serious: Yes (Life-Threatening, Hospitalization)
  Sender: FDA-Public Use
  Company Number: B0573986A

PATIENT
  Sex: Female

DRUGS (9)
  1. AUGMENTIN '125' [Suspect]
     Route: 048
     Dates: start: 20090211, end: 20090213
  2. NOVATREX [Concomitant]
     Indication: RHEUMATOID ARTHRITIS
     Dosage: 15MG WEEKLY
     Route: 048
     Dates: start: 20030101
  3. INNOHEP [Concomitant]
     Indication: DEEP VEIN THROMBOSIS
     Route: 058
     Dates: start: 20090204, end: 20090209
  4. COUMADIN [Concomitant]
     Indication: DEEP VEIN THROMBOSIS
     Route: 048
     Dates: start: 20090206, end: 20090213
  5. LAMALINE [Concomitant]
     Indication: PAIN
     Route: 048
     Dates: start: 20090123, end: 20090213
  6. MYOLASTAN [Concomitant]
     Route: 048
     Dates: start: 20090123, end: 20090213
  7. CORTANCYL [Concomitant]
     Indication: RHEUMATOID ARTHRITIS
     Dosage: 6MG PER DAY
     Route: 048
     Dates: start: 20010101, end: 20090213
  8. FOSAVANCE [Concomitant]
     Indication: OSTEOPOROSIS
     Route: 048
     Dates: start: 20010101
  9. OROCAL D3 [Concomitant]
     Route: 048

REACTIONS (4)
  - ERYTHROBLASTOSIS [None]
  - GRANULOCYTES ABNORMAL [None]
  - NEUTROPENIA [None]
  - PANCYTOPENIA [None]
